FAERS Safety Report 20508981 (Version 1)
Quarter: 2022Q1

REPORT INFORMATION
  Report Type: Spontaneous
  Country: US (occurrence: US)
  Receive Date: 20220223
  Receipt Date: 20220223
  Transmission Date: 20220423
  Serious: Yes (Other)
  Sender: FDA-Public Use
  Company Number: US-PFIZER INC-202200298616

PATIENT
  Sex: Female

DRUGS (1)
  1. PAXLOVID [Suspect]
     Active Substance: NIRMATRELVIR\RITONAVIR
     Indication: COVID-19
     Dosage: UNK

REACTIONS (9)
  - Hypoxia [Unknown]
  - Lip erythema [Unknown]
  - Erythema [Unknown]
  - Burning sensation [Unknown]
  - Neck pain [Unknown]
  - Dyspnoea [Unknown]
  - Dysgeusia [Unknown]
  - Pruritus [Unknown]
  - Heart rate decreased [Unknown]
